FAERS Safety Report 14610371 (Version 6)
Quarter: 2018Q2

REPORT INFORMATION
  Report Type: Spontaneous
  Country: DE (occurrence: DE)
  Receive Date: 20180307
  Receipt Date: 20180530
  Transmission Date: 20180711
  Serious: Yes (Other)
  Sender: FDA-Public Use
  Company Number: DE-TEVA-2018-DE-864509

PATIENT
  Sex: Male
  Weight: 80 kg

DRUGS (10)
  1. ONCOFOLIC [Suspect]
     Active Substance: FOLATE SODIUM
     Indication: PRODUCT USED FOR UNKNOWN INDICATION
     Route: 065
  2. PEGYLATED LIPOSOMAL IRINOTECAN [Suspect]
     Active Substance: IRINOTECAN HYDROCHLORIDE
     Indication: ADENOCARCINOMA OF COLON
     Dosage: LAST ADMINISTRATION BEFORE AE ONSET: 01-AUG-2017
     Route: 042
     Dates: start: 20170103, end: 20170801
  3. PANITUMUMAB [Suspect]
     Active Substance: PANITUMUMAB
     Indication: ADENOCARCINOMA OF COLON
     Dosage: LAST ADMINISTRATION BEFORE AE ONSET: 01-AUG-2017
     Route: 042
     Dates: start: 20170131, end: 20170801
  4. ONCOFOLIC [Concomitant]
     Active Substance: FOLATE SODIUM
     Dosage: 760 MG, UNK
     Route: 042
     Dates: start: 20170801
  5. FLUOROURACIL. [Suspect]
     Active Substance: FLUOROURACIL
     Dosage: 5940 MG, UNK
     Route: 042
     Dates: start: 20170801
  6. PEGYLATED LIPOSOMAL IRINOTECAN [Suspect]
     Active Substance: IRINOTECAN HYDROCHLORIDE
     Dosage: 355 MG, UNK
     Route: 042
     Dates: start: 20170801, end: 20170801
  7. FLUOROURACIL. [Suspect]
     Active Substance: FLUOROURACIL
     Indication: ADENOCARCINOMA OF COLON
     Dosage: LAST ADMINISTRATION BEFORE AE ONSET: 01-AUG-2017
     Route: 042
     Dates: start: 20170103, end: 20170801
  8. PALONOSETRON. [Concomitant]
     Active Substance: PALONOSETRON HYDROCHLORIDE
     Indication: PROPHYLAXIS
     Dosage: 8 HOURS AND 40 MINUTES PRIOR TO CHEMOTHERAPY
  9. PANITUMUMAB [Suspect]
     Active Substance: PANITUMUMAB
     Dosage: 480 MG, UNK
     Route: 042
     Dates: start: 20170801
  10. ONCOFOLIC [Concomitant]
     Active Substance: FOLATE SODIUM
     Indication: ADENOCARCINOMA OF COLON
     Dosage: LAST ADMINISTRATION BEFORE AE ONSET: 01-AUG-2017
     Route: 042
     Dates: start: 20170103

REACTIONS (2)
  - Skin infection [Recovered/Resolved]
  - Off label use [Unknown]

NARRATIVE: CASE EVENT DATE: 20170816
